FAERS Safety Report 20207097 (Version 1)
Quarter: 2021Q4

REPORT INFORMATION
  Report Type: Report from Study
  Country: DE (occurrence: DE)
  Receive Date: 20211220
  Receipt Date: 20211220
  Transmission Date: 20220303
  Serious: Yes (Hospitalization, Other)
  Sender: FDA-Public Use
  Company Number: DE-MYLANLABS-2021M1093399

PATIENT
  Sex: Female

DRUGS (3)
  1. HULIO [Suspect]
     Active Substance: ADALIMUMAB-FKJP
     Indication: Product used for unknown indication
     Dosage: 50 MILLIGRAM, Q2W
     Dates: start: 20190806, end: 20200401
  2. NAPROXEN [Concomitant]
     Active Substance: NAPROXEN
     Dosage: 750 MILLIGRAM, QW (7 DAYS PER WEEK)
     Dates: start: 20171005, end: 20201106
  3. METHOTREXATE SODIUM [Concomitant]
     Active Substance: METHOTREXATE SODIUM
     Dosage: 10 MILLIGRAM, QW
     Dates: start: 20160912

REACTIONS (1)
  - Transitional cell cancer of the renal pelvis and ureter [Recovered/Resolved]

NARRATIVE: CASE EVENT DATE: 20200303
